FAERS Safety Report 4488982-3 (Version None)
Quarter: 2004Q4

REPORT INFORMATION
  Report Type: 
  Country: None (occurrence: None)
  Receive Date: 20041026
  Receipt Date: 20041006
  Transmission Date: 20050328
  Serious: Yes (Other)
  Sender: FDA-Public Use
  Company Number: JP_041004805

PATIENT
  Sex: Female

DRUGS (3)
  1. VINBLASTINE SULFATE [Suspect]
     Indication: OVARIAN GERM CELL ENDODERMAL SINUS TUMOUR STAGE I
  2. CISPLATIN [Concomitant]
  3. BLEOMYCIN [Concomitant]

REACTIONS (10)
  - AMNIOTIC FLUID VOLUME DECREASED [None]
  - CAESAREAN SECTION [None]
  - COAGULOPATHY [None]
  - DRUG EXPOSURE DURING PREGNANCY [None]
  - FIBRINOLYSIS INCREASED [None]
  - FOETAL GROWTH RETARDATION [None]
  - HYPERTENSION [None]
  - PLATELET COUNT DECREASED [None]
  - PREMATURE BABY [None]
  - RENAL IMPAIRMENT [None]
